FAERS Safety Report 9290494 (Version 50)
Quarter: 2021Q2

REPORT INFORMATION
  Report Type: Other
  Country: CA (occurrence: CA)
  Receive Date: 20130515
  Receipt Date: 20210414
  Transmission Date: 20210717
  Serious: Yes (Other)
  Sender: FDA-Public Use
  Company Number: CA-ROCHE-1190976

PATIENT
  Age: 31 Year
  Sex: Female
  Weight: 121 kg

DRUGS (14)
  1. ACTEMRA [Suspect]
     Active Substance: TOCILIZUMAB
     Route: 042
     Dates: start: 20151228, end: 20160126
  2. ACTEMRA [Suspect]
     Active Substance: TOCILIZUMAB
     Indication: RHEUMATOID ARTHRITIS
     Route: 042
     Dates: start: 20140703, end: 20150803
  3. ACTEMRA [Suspect]
     Active Substance: TOCILIZUMAB
     Route: 042
     Dates: start: 20151020, end: 20151020
  4. ACTEMRA [Suspect]
     Active Substance: TOCILIZUMAB
     Dosage: NO PIRS RECEIVED FROM 16?JAN?2017 TO 27?FEB?2020; DOSAGE NOTED ACCORDING TO?PRESCRIPTION ENROLMENT R
     Route: 042
     Dates: start: 20161129, end: 20200723
  5. PREDNISONE. [Concomitant]
     Active Substance: PREDNISONE
     Indication: PRODUCT USED FOR UNKNOWN INDICATION
  6. ACTEMRA [Suspect]
     Active Substance: TOCILIZUMAB
     Route: 042
     Dates: start: 20160301, end: 20161011
  7. ACTEMRA [Suspect]
     Active Substance: TOCILIZUMAB
     Route: 042
     Dates: start: 20151208, end: 20151208
  8. RIVOTRIL [Concomitant]
     Active Substance: CLONAZEPAM
     Indication: ANXIETY
     Route: 048
  9. ACTEMRA [Suspect]
     Active Substance: TOCILIZUMAB
     Route: 042
     Dates: start: 20200819, end: 20210325
  10. DEXILANT [Concomitant]
     Active Substance: DEXLANSOPRAZOLE
     Indication: PRODUCT USED FOR UNKNOWN INDICATION
  11. ACTEMRA [Suspect]
     Active Substance: TOCILIZUMAB
     Indication: JUVENILE IDIOPATHIC ARTHRITIS
     Route: 042
     Dates: start: 20121107, end: 20140604
  12. ACTEMRA [Suspect]
     Active Substance: TOCILIZUMAB
     Route: 042
     Dates: start: 20150828, end: 20150923
  13. ACTEMRA [Suspect]
     Active Substance: TOCILIZUMAB
     Route: 042
     Dates: start: 20151111, end: 20151111
  14. ACTEMRA [Suspect]
     Active Substance: TOCILIZUMAB
     Route: 042
     Dates: start: 20160321, end: 20161011

REACTIONS (33)
  - Irritable bowel syndrome [Not Recovered/Not Resolved]
  - Mobility decreased [Not Recovered/Not Resolved]
  - Nasopharyngitis [Unknown]
  - Sinusitis [Unknown]
  - Joint swelling [Unknown]
  - Urticaria [Unknown]
  - Oropharyngeal pain [Unknown]
  - Hidradenitis [Unknown]
  - Clostridium difficile infection [Not Recovered/Not Resolved]
  - Cyst [Not Recovered/Not Resolved]
  - Migraine [Unknown]
  - Bronchitis [Not Recovered/Not Resolved]
  - Rheumatoid arthritis [Not Recovered/Not Resolved]
  - Anxiety [Unknown]
  - Bartholin^s cyst [Not Recovered/Not Resolved]
  - Sinusitis [Not Recovered/Not Resolved]
  - Arthropathy [Unknown]
  - Urinary tract infection [Unknown]
  - Abdominal pain [Unknown]
  - Throat irritation [Unknown]
  - Acne cystic [Unknown]
  - Blood pressure increased [Unknown]
  - Tympanic membrane perforation [Unknown]
  - Weight decreased [Unknown]
  - Acne [Recovering/Resolving]
  - Wound [Recovering/Resolving]
  - Haematochezia [Recovered/Resolved]
  - Weight increased [Recovering/Resolving]
  - Heart rate increased [Unknown]
  - Blood pressure diastolic increased [Unknown]
  - Pain in extremity [Unknown]
  - Clostridium difficile infection [Unknown]
  - Weight increased [Not Recovered/Not Resolved]

NARRATIVE: CASE EVENT DATE: 2013
